FAERS Safety Report 7669674-6 (Version None)
Quarter: 2011Q3

REPORT INFORMATION
  Report Type: 
  Country: None (occurrence: None)
  Receive Date: 20110808
  Receipt Date: 20110802
  Transmission Date: 20111222
  Serious: Yes (Hospitalization)
  Sender: FDA-Public Use
  Company Number: US-ABBOTT-11P-163-0843960-00

PATIENT
  Age: 26 Year
  Sex: Female

DRUGS (10)
  1. HUMIRA [Suspect]
     Route: 058
     Dates: start: 20110620
  2. PRENATAL VITAMINS [Concomitant]
     Indication: VITAMIN SUPPLEMENTATION
     Route: 048
     Dates: start: 20100901, end: 20110501
  3. HUMIRA [Suspect]
     Indication: RHEUMATOID ARTHRITIS
     Route: 058
     Dates: start: 20060101, end: 20080101
  4. UNKNOWN BIRTH CONTROL [Concomitant]
     Indication: CONTRACEPTION
     Route: 048
     Dates: start: 20110601
  5. PREDNISONE [Concomitant]
     Indication: RHEUMATOID ARTHRITIS
     Dates: start: 20110601, end: 20110601
  6. PREDNISONE [Concomitant]
     Dates: start: 20110601, end: 20110701
  7. PREDNISONE [Concomitant]
     Dates: start: 20110701
  8. HUMIRA [Suspect]
     Route: 058
     Dates: start: 20080101, end: 20090101
  9. HUMIRA [Suspect]
     Route: 058
     Dates: start: 20090101, end: 20100818
  10. PREDNISONE [Concomitant]
     Dates: start: 20110701, end: 20110701

REACTIONS (3)
  - JOINT SWELLING [None]
  - TERATOMA BENIGN [None]
  - BENIGN OVARIAN TUMOUR [None]
